FAERS Safety Report 20405205 (Version 1)
Quarter: 2022Q1

REPORT INFORMATION
  Report Type: Spontaneous
  Country: US (occurrence: US)
  Receive Date: 20220131
  Receipt Date: 20220131
  Transmission Date: 20220423
  Serious: Yes (Hospitalization)
  Sender: FDA-Public Use
  Company Number: US-MYLANLABS-2022M1008374

PATIENT
  Age: 70 Year
  Sex: Male

DRUGS (7)
  1. TRETINOIN [Suspect]
     Active Substance: TRETINOIN
     Indication: Acute promyelocytic leukaemia
     Dosage: 22.5 MILLIGRAM/SQ. METER, BID
     Route: 048
  2. TRETINOIN [Suspect]
     Active Substance: TRETINOIN
     Dosage: SLURRY
     Route: 065
  3. TRETINOIN [Suspect]
     Active Substance: TRETINOIN
     Indication: Acute promyelocytic leukaemia
     Dosage: SLURRY
     Route: 065
  4. HYDROXYUREA [Concomitant]
     Active Substance: HYDROXYUREA
     Indication: Product used for unknown indication
     Dosage: UNK
     Route: 065
  5. ARSENIC TRIOXIDE [Concomitant]
     Active Substance: ARSENIC TRIOXIDE
     Indication: Acute promyelocytic leukaemia
     Dosage: 0.3 MILLIGRAM/KILOGRAM
     Route: 042
  6. GEMTUZUMAB OZOGAMICIN [Concomitant]
     Active Substance: GEMTUZUMAB OZOGAMICIN
     Indication: Acute promyelocytic leukaemia
     Dosage: 6 MILLIGRAM/SQ. METER, ONCE
     Route: 042
  7. DEXAMETHASONE [Concomitant]
     Active Substance: DEXAMETHASONE
     Indication: Product used for unknown indication
     Dosage: 10 MILLIGRAM, BID
     Route: 042

REACTIONS (4)
  - Differentiation syndrome [Unknown]
  - Acute respiratory failure [Unknown]
  - Subdural haemorrhage [Unknown]
  - Off label use [Unknown]
